FAERS Safety Report 5642012-6 (Version None)
Quarter: 2008Q1

REPORT INFORMATION
  Report Type: 
  Country: None (occurrence: None)
  Receive Date: 20080225
  Receipt Date: 20080208
  Transmission Date: 20080703
  Serious: Yes (Other)
  Sender: FDA-Public Use
  Company Number: 000#8#2008-00037

PATIENT
  Age: 74 Year
  Sex: Female

DRUGS (4)
  1. ISOSORBIDE MONONITRATE [Suspect]
     Indication: INFECTION
     Dosage: ORAL
     Route: 048
  2. ISEPAMICIN (ISEPAMICIN) [Suspect]
     Indication: INFECTION
     Dosage: INTRAVENOUS
     Route: 042
     Dates: start: 20070226, end: 20070228
  3. IMIPENAM (IMIPENEM) [Suspect]
     Indication: INFECTION
     Dosage: 1.5 G (500 MG 3 IN 1 DAY(S)) INTRAVENOUS
     Route: 042
     Dates: start: 20070228, end: 20070306
  4. AMIODARONE HCL [Suspect]
     Indication: INFECTION
     Dosage: INTRAVENOUS
     Route: 042

REACTIONS (3)
  - HEPATOCELLULAR INJURY [None]
  - HYPOTENSION [None]
  - RENAL FAILURE ACUTE [None]
